FAERS Safety Report 5447781-6 (Version None)
Quarter: 2007Q3

REPORT INFORMATION
  Report Type: 
  Country: None (occurrence: None)
  Receive Date: 20070910
  Receipt Date: 20070827
  Transmission Date: 20080115
  Serious: Yes (Hospitalization)
  Sender: FDA-Public Use
  Company Number: US-BAUSCH-2007BL002124

PATIENT
  Age: 62 Year
  Sex: Male

DRUGS (17)
  1. ATROPINE SULFATE [Suspect]
     Indication: PREOPERATIVE CARE
     Route: 047
     Dates: start: 20070516, end: 20070520
  2. BETA BLOCKING AGENTS [Concomitant]
  3. OXYCONTIN [Concomitant]
  4. ACYCLOVIR [Concomitant]
  5. ERGOCALCIFEROL [Concomitant]
  6. ESOMEPRAZOLE MAGNESIUM [Concomitant]
  7. FLUCONAZOLE [Concomitant]
  8. HYDROCORTISONE [Concomitant]
  9. LEVOTHYROXINE SODIUM [Concomitant]
  10. METOPROLOL SUCCINATE [Concomitant]
  11. MYCOPHENOLATE MOFETIL [Concomitant]
  12. SENNOSIDES [Concomitant]
  13. SULFAMETHOXAZOLE [Concomitant]
  14. TAMSULOSIN HCL [Concomitant]
  15. VENLAFAXINE HCL [Concomitant]
  16. LORAZEPAM [Concomitant]
  17. MORPHINE [Concomitant]

REACTIONS (13)
  - ABNORMAL BEHAVIOUR [None]
  - CEREBELLAR ATROPHY [None]
  - CEREBRAL ATROPHY [None]
  - CONTUSION [None]
  - CONVULSION [None]
  - ENCEPHALITIS TOXIC [None]
  - FALL [None]
  - PSYCHOTIC DISORDER [None]
  - SENSORY DISTURBANCE [None]
  - SKIN DISORDER [None]
  - SKIN LACERATION [None]
  - SLEEP APNOEA SYNDROME [None]
  - WHITE BLOOD CELL DISORDER [None]
